FAERS Safety Report 4688480-8 (Version None)
Quarter: 2005Q2

REPORT INFORMATION
  Report Type: 
  Country: None (occurrence: None)
  Receive Date: 20050311
  Receipt Date: 20050311
  Transmission Date: 20051028
  Serious: Yes (Other)
  Sender: FDA-Public Use
  Company Number: None

PATIENT
  Age: 15 Year
  Sex: Male

DRUGS (4)
  1. WARFARIN 5MG 4MG [Suspect]
     Indication: BLOOD FIBRINOGEN ABNORMAL
     Dosage: 5MG QD ONE 2D  4MG QD ON DAY 3
     Dates: start: 20041104
  2. WARFARIN 5MG 4MG [Suspect]
     Indication: PROTHROMBIN LEVEL DECREASED
     Dosage: 5MG QD ONE 2D  4MG QD ON DAY 3
     Dates: start: 20041104
  3. WARFARIN 5MG 4MG [Suspect]
     Indication: BLOOD FIBRINOGEN ABNORMAL
     Dosage: 5MG QD ONE 2D  4MG QD ON DAY 3
     Dates: start: 20041104
  4. WARFARIN 5MG 4MG [Suspect]
     Indication: PROTHROMBIN LEVEL DECREASED
     Dosage: 5MG QD ONE 2D  4MG QD ON DAY 3
     Dates: start: 20041104

REACTIONS (2)
  - DRUG INEFFECTIVE [None]
  - PROTHROMBIN TIME ABNORMAL [None]
